FAERS Safety Report 8578863-8 (Version None)
Quarter: 2012Q3

REPORT INFORMATION
  Report Type: 
  Country: None (occurrence: None)
  Receive Date: 20120808
  Receipt Date: 20120802
  Transmission Date: 20120928
  Serious: Yes (Death, Life-Threatening, Hospitalization)
  Sender: FDA-Public Use
  Company Number: RO-JNJFOC-20120610357

PATIENT
  Sex: Male
  Weight: 57 kg

DRUGS (3)
  1. PREDNISONE TAB [Suspect]
     Indication: PROSTATE CANCER METASTATIC
     Route: 048
     Dates: start: 20111216, end: 20120616
  2. ABIRATERONE ACETATE [Suspect]
     Indication: PROSTATE CANCER METASTATIC
     Route: 048
     Dates: start: 20111216, end: 20120616
  3. ABIRATERONE ACETATE [Suspect]
     Route: 048

REACTIONS (3)
  - ANAEMIA [None]
  - DEHYDRATION [None]
  - CARDIO-RESPIRATORY ARREST [None]
